FAERS Safety Report 18207703 (Version 2)
Quarter: 2020Q3

REPORT INFORMATION
  Report Type: Spontaneous
  Country: US (occurrence: US)
  Receive Date: 20200828
  Receipt Date: 20200901
  Transmission Date: 20201103
  Serious: No
  Sender: FDA-Public Use
  Company Number: US-PFIZER INC-2020331964

PATIENT
  Age: 56 Year
  Sex: Male
  Weight: 87.54 kg

DRUGS (6)
  1. TEGRETOL [Interacting]
     Active Substance: CARBAMAZEPINE
     Indication: EPILEPSY
     Dosage: 500 MG, 2X/DAY [2?200 AND A 100 SO 500MG IN THE MORNING AND EVENING]
     Dates: start: 2011
  2. VITAMIN D3 [Concomitant]
     Active Substance: CHOLECALCIFEROL
     Indication: BONE DISORDER
     Dosage: UNK, 2X/DAY [1,000 MILLI UNIT 2 A DAY]
     Dates: start: 2011
  3. LEVETIRACETAM. [Concomitant]
     Active Substance: LEVETIRACETAM
     Indication: EPILEPSY
     Dosage: 1700 MG, DAILY (1,700 MG A DAY)
     Dates: start: 2009
  4. DILANTIN [Suspect]
     Active Substance: PHENYTOIN
     Indication: EPILEPSY
     Dosage: 150 MG IN THE MORNING AND IN THE AFTERNOON AND EVENING
     Dates: start: 2011
  5. TOPIRAMATE. [Interacting]
     Active Substance: TOPIRAMATE
     Indication: SEIZURE
     Dosage: 50 MG, 2X/DAY (25MG. TWO TABLETS TWO TIMES DAILY.)
     Dates: start: 2011
  6. CLONAZEPAM. [Concomitant]
     Active Substance: CLONAZEPAM
     Indication: SEIZURE
     Dosage: 0.75 MG, 2X/DAY [0.5 MG HE TAKES ONE AND ONE HALF, IN THE MORNING AND EVENING 0.75 MG TOTAL EACH]
     Dates: start: 2011

REACTIONS (2)
  - Labelled drug-drug interaction medication error [Unknown]
  - Weight decreased [Unknown]
